FAERS Safety Report 9525570 (Version 3)
Quarter: 2013Q4

REPORT INFORMATION
  Report Type: Report from Study
  Country: DE (occurrence: DE)
  Receive Date: 20130916
  Receipt Date: 20131120
  Transmission Date: 20140711
  Serious: Yes (Hospitalization)
  Sender: FDA-Public Use
  Company Number: DE-ABBVIE-13P-062-1146380-00

PATIENT
  Age: 56 Year
  Sex: Female
  Weight: 69 kg

DRUGS (5)
  1. HUMIRA [Suspect]
     Indication: CROHN^S DISEASE
     Route: 058
     Dates: start: 20120531, end: 20130723
  2. HUMIRA [Suspect]
     Dates: start: 20130930
  3. METRONIDAZOL [Concomitant]
     Indication: PRODUCT USED FOR UNKNOWN INDICATION
     Dates: start: 20130930
  4. NOVAMINSULFON [Concomitant]
     Indication: CROHN^S DISEASE
  5. SULFASALAZINE [Concomitant]
     Indication: CROHN^S DISEASE

REACTIONS (1)
  - Intestinal stenosis [Recovered/Resolved]
